FAERS Safety Report 20210079 (Version 4)
Quarter: 2022Q2

REPORT INFORMATION
  Report Type: Report from Study
  Country: US (occurrence: US)
  Receive Date: 20211221
  Receipt Date: 20220422
  Transmission Date: 20220721
  Serious: Yes (Other)
  Sender: FDA-Public Use
  Company Number: US-ABBVIE-21K-163-4204718-00

PATIENT
  Sex: Male

DRUGS (4)
  1. IMBRUVICA [Suspect]
     Active Substance: IBRUTINIB
     Indication: Marginal zone lymphoma
     Route: 048
     Dates: start: 20211124
  2. PFIZER-BIONTECH COVID-19 VACCINE [Concomitant]
     Active Substance: TOZINAMERAN
     Indication: COVID-19 immunisation
     Dosage: 1ST DOSE
     Route: 030
     Dates: start: 202102, end: 202102
  3. PFIZER-BIONTECH COVID-19 VACCINE [Concomitant]
     Active Substance: TOZINAMERAN
     Dosage: 2ND DOSE
     Route: 030
     Dates: start: 202103, end: 202103
  4. PFIZER-BIONTECH COVID-19 VACCINE [Concomitant]
     Active Substance: TOZINAMERAN
     Dosage: BOOSTER DOSE
     Route: 030
     Dates: start: 202201, end: 202201

REACTIONS (23)
  - Haemoglobin abnormal [Recovering/Resolving]
  - Skin disorder [Not Recovered/Not Resolved]
  - Weight increased [Not Recovered/Not Resolved]
  - Hypermetropia [Not Recovered/Not Resolved]
  - Wheezing [Not Recovered/Not Resolved]
  - White blood cell count increased [Unknown]
  - Red blood cell count increased [Unknown]
  - Impaired healing [Unknown]
  - Muscle spasms [Not Recovered/Not Resolved]
  - Cheilitis [Recovering/Resolving]
  - Fatigue [Not Recovered/Not Resolved]
  - Arthralgia [Not Recovered/Not Resolved]
  - Stomatitis [Not Recovered/Not Resolved]
  - Neuropathy peripheral [Not Recovered/Not Resolved]
  - Diarrhoea [Not Recovered/Not Resolved]
  - Weight decreased [Unknown]
  - Contusion [Unknown]
  - Abdominal pain upper [Not Recovered/Not Resolved]
  - Asthenia [Not Recovered/Not Resolved]
  - Cough [Not Recovered/Not Resolved]
  - Constipation [Not Recovered/Not Resolved]
  - Bone pain [Not Recovered/Not Resolved]
  - Blood potassium decreased [Unknown]

NARRATIVE: CASE EVENT DATE: 20210101
